FAERS Safety Report 6421663-5 (Version None)
Quarter: 2009Q4

REPORT INFORMATION
  Report Type: 
  Country: None (occurrence: None)
  Receive Date: 20091029
  Receipt Date: 20091029
  Transmission Date: 20100525
  Serious: No
  Sender: FDA-Public Use
  Company Number: None

PATIENT

DRUGS (1)
  1. SULFAMETHOXAZOLE AND TRIMETHOPRIM [Suspect]
     Indication: EAR INFECTION
     Dosage: 2 TIMES PER DAY PO
     Route: 048
     Dates: start: 20091019, end: 20091023

REACTIONS (9)
  - ASTHENIA [None]
  - CHILLS [None]
  - DECREASED APPETITE [None]
  - FEELING ABNORMAL [None]
  - GAIT DISTURBANCE [None]
  - INFLUENZA LIKE ILLNESS [None]
  - PYREXIA [None]
  - RASH GENERALISED [None]
  - TREMOR [None]
